FAERS Safety Report 5049908-7 (Version None)
Quarter: 2006Q3

REPORT INFORMATION
  Report Type: 
  Country: None (occurrence: None)
  Receive Date: 20060706
  Receipt Date: 20060621
  Transmission Date: 20061208
  Serious: Yes (Other)
  Sender: FDA-Public Use
  Company Number: 007787

PATIENT
  Age: 51 Year
  Sex: Male

DRUGS (2)
  1. TRIAMTERENE + HYDROCHLOROTHIAZIDE(TRIAMTERENE, HYDROCHLOROTHIAZIDE) CA [Suspect]
     Indication: HYPERTENSION
     Dosage: 1 CAPS, QD, ORAL
     Route: 048
     Dates: start: 20051001
  2. DILANTIN [Concomitant]

REACTIONS (2)
  - CONDITION AGGRAVATED [None]
  - PETIT MAL EPILEPSY [None]
